FAERS Safety Report 18643836 (Version 1)
Quarter: 2020Q4

REPORT INFORMATION
  Report Type: Spontaneous
  Country: US (occurrence: US)
  Receive Date: 20201221
  Receipt Date: 20201221
  Transmission Date: 20210114
  Serious: No
  Sender: FDA-Public Use
  Company Number: US-ASTRAZENECA-2020SF63313

PATIENT
  Sex: Male

DRUGS (1)
  1. BYDUREON BCISE [Suspect]
     Active Substance: EXENATIDE
     Route: 065

REACTIONS (6)
  - Injection site haemorrhage [Unknown]
  - Needle issue [Unknown]
  - Diabetes mellitus inadequate control [Unknown]
  - Frustration tolerance decreased [Unknown]
  - Therapeutic product effect decreased [Unknown]
  - Injury associated with device [Unknown]
